FAERS Safety Report 18691503 (Version 1)
Quarter: 2021Q1

REPORT INFORMATION
  Report Type: Report from Study
  Country: US (occurrence: US)
  Receive Date: 20210101
  Receipt Date: 20210101
  Transmission Date: 20210419
  Serious: Yes (Other)
  Sender: FDA-Public Use
  Company Number: US-BAUSCH-BL-2020-039174

PATIENT
  Age: 29 Year
  Sex: Male

DRUGS (5)
  1. XENAZINE [Suspect]
     Active Substance: TETRABENAZINE
     Dosage: DOSE REDUCED
     Route: 048
  2. KEPPRA [Suspect]
     Active Substance: LEVETIRACETAM
     Route: 065
  3. KEPPRA [Suspect]
     Active Substance: LEVETIRACETAM
     Indication: PRODUCT USED FOR UNKNOWN INDICATION
     Route: 065
  4. XENAZINE [Suspect]
     Active Substance: TETRABENAZINE
     Indication: PRODUCT USED FOR UNKNOWN INDICATION
     Route: 048
  5. XENAZINE [Suspect]
     Active Substance: TETRABENAZINE
     Dosage: DOSE INCREASED
     Route: 048

REACTIONS (6)
  - Freezing phenomenon [Recovering/Resolving]
  - Speech disorder [Unknown]
  - Adverse event [Unknown]
  - Seizure [Recovered/Resolved]
  - Dyskinesia [Recovering/Resolving]
  - Anxiety [Not Recovered/Not Resolved]
